FAERS Safety Report 22192177 (Version 1)
Quarter: 2023Q2

REPORT INFORMATION
  Report Type: Spontaneous
  Country: US (occurrence: None)
  Receive Date: 20230408
  Receipt Date: 20230408
  Transmission Date: 20230721
  Serious: Yes (Life-Threatening, Disabling)
  Sender: FDA-Public Use
  Company Number: None

PATIENT
  Age: 48 Year
  Sex: Female
  Weight: 71.1 kg

DRUGS (1)
  1. MELOXICAM [Suspect]
     Active Substance: MELOXICAM
     Indication: Arthritis
     Dosage: OTHER QUANTITY : 60 TABLET(S);?
     Route: 048
     Dates: start: 20230223, end: 20230327

REACTIONS (2)
  - Vertigo [None]
  - Glomerular filtration rate decreased [None]

NARRATIVE: CASE EVENT DATE: 20230325
